FAERS Safety Report 25546029 (Version 1)
Quarter: 2025Q3

REPORT INFORMATION
  Report Type: Spontaneous
  Country: EU (occurrence: EU)
  Receive Date: 20250712
  Receipt Date: 20250712
  Transmission Date: 20251021
  Serious: Yes (Other)
  Sender: STRIDES
  Company Number: EU-STRIDES ARCOLAB LIMITED-2025SP008661

PATIENT
  Age: 62 Year
  Sex: Male

DRUGS (4)
  1. IMIPRAMINE HYDROCHLORIDE [Interacting]
     Active Substance: IMIPRAMINE HYDROCHLORIDE
     Indication: Neuralgia
     Route: 065
  2. PROPOFOL [Interacting]
     Active Substance: PROPOFOL
     Indication: Anaesthesia
     Route: 042
  3. REMIFENTANIL [Interacting]
     Active Substance: REMIFENTANIL
     Indication: Anaesthesia
     Route: 042
  4. FENTANYL [Interacting]
     Active Substance: FENTANYL
     Indication: Anaesthesia
     Route: 042

REACTIONS (3)
  - Procedural hypotension [Unknown]
  - Drug interaction [Unknown]
  - Off label use [Unknown]
